FAERS Safety Report 5839505-5 (Version None)
Quarter: 2008Q3

REPORT INFORMATION
  Report Type: 
  Country: None (occurrence: None)
  Receive Date: 20080807
  Receipt Date: 20080731
  Transmission Date: 20090109
  Serious: Yes (Other)
  Sender: FDA-Public Use
  Company Number: 031613

PATIENT
  Age: 13 Year
  Sex: Female

DRUGS (1)
  1. FLUOXETINE [Suspect]
     Indication: OBSESSIVE-COMPULSIVE DISORDER
     Dosage: 10 MG/DAY TITRATE UP TO 30MG/DAY,; 10 MG/DAY,

REACTIONS (8)
  - DECREASED ACTIVITY [None]
  - DECREASED APPETITE [None]
  - DELUSION [None]
  - ECHOLALIA [None]
  - HALLUCINATIONS, MIXED [None]
  - HYPERSOMNIA [None]
  - PSYCHOTIC DISORDER [None]
  - SOCIAL AVOIDANT BEHAVIOUR [None]
